FAERS Safety Report 16839476 (Version 3)
Quarter: 2019Q4

REPORT INFORMATION
  Report Type: Report from Study
  Country: US (occurrence: US)
  Receive Date: 20190923
  Receipt Date: 20191014
  Transmission Date: 20200122
  Serious: Yes (Death, Other)
  Sender: FDA-Public Use
  Company Number: US-GILEAD-2019-0429919

PATIENT
  Age: 57 Year
  Sex: Male

DRUGS (7)
  1. ADCIRCA [Concomitant]
     Active Substance: TADALAFIL
  2. THERAMINE [Concomitant]
     Active Substance: .GAMMA.-AMINOBUTYRIC ACID
  3. AMBRISENTAN [Suspect]
     Active Substance: AMBRISENTAN
     Indication: PULMONARY ARTERIAL HYPERTENSION
     Dosage: 5 MG, QD
     Route: 048
     Dates: start: 201708, end: 20190827
  4. TRIUMEQ [Concomitant]
     Active Substance: ABACAVIR SULFATE\DOLUTEGRAVIR SODIUM\LAMIVUDINE
  5. XIFAXAN [Concomitant]
     Active Substance: RIFAXIMIN
  6. LISINOPRIL. [Concomitant]
     Active Substance: LISINOPRIL
  7. ATORVASTATIN [Concomitant]
     Active Substance: ATORVASTATIN

REACTIONS (1)
  - Hypoglycaemia [Fatal]

NARRATIVE: CASE EVENT DATE: 20190823
